FAERS Safety Report 23045387 (Version 1)
Quarter: 2023Q4

REPORT INFORMATION
  Report Type: Spontaneous
  Country: GB (occurrence: GB)
  Receive Date: 20231009
  Receipt Date: 20231009
  Transmission Date: 20240110
  Serious: Yes (Other)
  Sender: FDA-Public Use
  Company Number: None

PATIENT

DRUGS (1)
  1. METRONIDAZOLE [Suspect]
     Active Substance: METRONIDAZOLE
     Indication: Abdominal pain upper
     Route: 065
     Dates: start: 20230626, end: 20230628

REACTIONS (6)
  - Joint lock [Not Recovered/Not Resolved]
  - Chromaturia [Unknown]
  - Urine odour abnormal [Unknown]
  - Nightmare [Unknown]
  - Hypersomnia [Unknown]
  - Dysgeusia [Unknown]

NARRATIVE: CASE EVENT DATE: 20230628
